FAERS Safety Report 23697166 (Version 2)
Quarter: 2025Q4

REPORT INFORMATION
  Report Type: Spontaneous
  Country: EU (occurrence: EU)
  Receive Date: 20240402
  Receipt Date: 20251119
  Transmission Date: 20260118
  Serious: Yes (Other)
  Sender: MSN LABORATORIES PRIVATE LIMITED
  Company Number: EU-EMA-DD-20210405-jain_h1-134426

PATIENT

DRUGS (8)
  1. PREGABALIN [Suspect]
     Active Substance: PREGABALIN
     Indication: Product used for unknown indication
     Route: 065
  2. .ALPHA.-PYRROLIDINOVALEROTHIOPHENONE [Suspect]
     Active Substance: .ALPHA.-PYRROLIDINOVALEROTHIOPHENONE
     Indication: Product used for unknown indication
     Route: 065
  3. BUPRENORPHINE [Suspect]
     Active Substance: BUPRENORPHINE
     Indication: Product used for unknown indication
     Route: 065
  4. CODEINE [Suspect]
     Active Substance: CODEINE
     Indication: Product used for unknown indication
     Route: 065
  5. DIAZEPAM [Suspect]
     Active Substance: DIAZEPAM
     Indication: Product used for unknown indication
     Route: 065
  6. MORPHINE [Suspect]
     Active Substance: MORPHINE
     Indication: Product used for unknown indication
     Route: 065
  7. NORDAZEPAM [Suspect]
     Active Substance: NORDAZEPAM
     Indication: Product used for unknown indication
     Route: 065
  8. LORAZEPAM [Suspect]
     Active Substance: LORAZEPAM
     Indication: Product used for unknown indication
     Route: 065

REACTIONS (20)
  - Miosis [Unknown]
  - Emotional distress [Unknown]
  - Gait disturbance [Unknown]
  - Homicidal ideation [Unknown]
  - Psychotic behaviour [Unknown]
  - Bradyphrenia [Unknown]
  - Mood swings [Unknown]
  - Aggression [Unknown]
  - Depressed level of consciousness [Unknown]
  - Amnesia [Unknown]
  - Dysarthria [Unknown]
  - Disorientation [Unknown]
  - Impaired driving ability [Unknown]
  - Somnolence [Unknown]
  - Drug abuse [Unknown]
  - Drug dependence [Unknown]
  - Delusion [Unknown]
  - Bradykinesia [Unknown]
  - Drug interaction [Unknown]
  - Confusional state [Unknown]
